FAERS Safety Report 7220316-3 (Version None)
Quarter: 2011Q1

REPORT INFORMATION
  Report Type: 
  Country: None (occurrence: None)
  Receive Date: 20110111
  Receipt Date: 20110103
  Transmission Date: 20110831
  Serious: Yes (Hospitalization, Other)
  Sender: FDA-Public Use
  Company Number: US-ASTRAZENECA-2011SE00291

PATIENT
  Age: 525 Month
  Sex: Male
  Weight: 54 kg

DRUGS (6)
  1. SEROQUEL [Suspect]
     Indication: SLEEP DISORDER
     Route: 048
  2. LYRICA [Concomitant]
     Indication: MUSCULOSKELETAL PAIN
  3. EFFEXOR [Concomitant]
     Indication: ANXIETY
  4. EFFEXOR [Concomitant]
     Indication: DEPRESSION
  5. SEROQUEL [Suspect]
     Indication: BIPOLAR DISORDER
     Route: 048
  6. PROTONIX [Concomitant]
     Indication: OESOPHAGEAL DISORDER

REACTIONS (5)
  - ALCOHOL WITHDRAWAL SYNDROME [None]
  - GRAND MAL CONVULSION [None]
  - PANIC ATTACK [None]
  - SOMNOLENCE [None]
  - CONVULSION [None]
